FAERS Safety Report 9696918 (Version 2)
Quarter: 2013Q4

REPORT INFORMATION
  Report Type: Spontaneous
  Country: US (occurrence: US)
  Receive Date: 20131119
  Receipt Date: 20131119
  Transmission Date: 20140711
  Serious: No
  Sender: FDA-Public Use
  Company Number: US-GILEAD-2007-0013810

PATIENT
  Sex: Female

DRUGS (24)
  1. LETAIRIS [Suspect]
     Indication: PULMONARY ARTERIAL HYPERTENSION
     Route: 048
     Dates: start: 200710
  2. IBUPROFEN [Concomitant]
     Dosage: AS NEEDED
     Route: 048
  3. BETHAMETHAZONE [Concomitant]
  4. DERMA-SMOOTHE/FS [Concomitant]
  5. DESONIDE [Concomitant]
  6. ADVICOR [Concomitant]
     Route: 048
  7. ALPRAZOLAM [Concomitant]
  8. ASPIRIN [Concomitant]
     Route: 048
  9. GLIPIZIDE [Concomitant]
     Route: 048
  10. HYDROCODONE [Concomitant]
  11. MECLIZINE [Concomitant]
  12. METFORMIN ER [Concomitant]
     Route: 048
  13. MULTIVITAMIN [Concomitant]
     Route: 048
  14. ZOLOFT [Concomitant]
     Route: 048
  15. ALBUTEROL INHALER [Concomitant]
     Route: 055
  16. DIGOXIN [Concomitant]
     Route: 048
  17. FUROSEMIDE [Concomitant]
     Route: 048
  18. K-DUR [Concomitant]
     Route: 048
  19. LISINOPRIL [Concomitant]
     Route: 048
  20. NORVASC [Concomitant]
     Route: 048
  21. HYDROXYZINE [Concomitant]
     Route: 048
  22. CYCLOBENZAPRINE [Concomitant]
     Route: 048
  23. HYDROXYCHLOROQUINE [Concomitant]
     Route: 048
  24. HAIR, SKIN, + NAILS [Concomitant]
     Route: 048

REACTIONS (2)
  - Heart rate irregular [Not Recovered/Not Resolved]
  - Palpitations [Not Recovered/Not Resolved]
